FAERS Safety Report 6254680-9 (Version None)
Quarter: 2009Q3

REPORT INFORMATION
  Report Type: 
  Country: None (occurrence: None)
  Receive Date: 20090702
  Receipt Date: 20090625
  Transmission Date: 20100115
  Serious: Yes (Other)
  Sender: FDA-Public Use
  Company Number: US-AVENTIS-200915058US

PATIENT
  Sex: Female
  Weight: 78.01 kg

DRUGS (11)
  1. LANTUS [Suspect]
     Route: 058
     Dates: start: 20090505
  2. GLUMETZA [Concomitant]
     Dosage: DOSE: UNK
  3. OXAZEPAM [Concomitant]
     Dosage: DOSE: UNK
  4. PRANDIN                            /01393601/ [Concomitant]
     Dosage: DOSE: UNK
  5. CRESTOR [Concomitant]
     Dosage: DOSE: UNK
  6. IMPRAMINE HCL [Concomitant]
     Dosage: DOSE: UNK
  7. FUROSEMIDE INTENSOL [Concomitant]
     Dosage: DOSE: UNK
  8. LABETALOL HCL [Concomitant]
     Dosage: DOSE: UNK
  9. DIOVANE [Concomitant]
     Dosage: DOSE: UNK
  10. VIT D AND E [Concomitant]
     Dosage: DOSE: UNK
     Dates: start: 20080910
  11. ASPIRIN [Concomitant]
     Dosage: DOSE: UNK

REACTIONS (2)
  - BLOOD PRESSURE INCREASED [None]
  - HEADACHE [None]
